FAERS Safety Report 6310824-1 (Version None)
Quarter: 2009Q3

REPORT INFORMATION
  Report Type: 
  Country: None (occurrence: None)
  Receive Date: 20090812
  Receipt Date: 20090805
  Transmission Date: 20100115
  Serious: Yes (Hospitalization)
  Sender: FDA-Public Use
  Company Number: 2009050039

PATIENT
  Sex: Female

DRUGS (2)
  1. ASTEPRO [Suspect]
     Dosage: IN
     Dates: start: 20090401
  2. XYZAL [Suspect]
     Indication: HYPERSENSITIVITY
     Dosage: ORAL
     Route: 048
     Dates: start: 20090401

REACTIONS (3)
  - ECONOMIC PROBLEM [None]
  - HALLUCINATION [None]
  - INSOMNIA [None]
